FAERS Safety Report 23587460 (Version 2)
Quarter: 2024Q1

REPORT INFORMATION
  Report Type: Spontaneous
  Country: FI (occurrence: FI)
  Receive Date: 20240301
  Receipt Date: 20240307
  Transmission Date: 20240410
  Serious: No
  Sender: FDA-Public Use
  Company Number: FI-SANOFI-01955708

PATIENT
  Age: 82 Year
  Sex: Male

DRUGS (1)
  1. TOUJEO [Suspect]
     Active Substance: INSULIN GLARGINE
     Dosage: UNK

REACTIONS (3)
  - Blood glucose increased [Unknown]
  - Device issue [Unknown]
  - Product dose omission issue [Unknown]
